FAERS Safety Report 14394564 (Version 1)
Quarter: 2018Q1

REPORT INFORMATION
  Report Type: Spontaneous
  Country: GB (occurrence: GB)
  Receive Date: 20180116
  Receipt Date: 20180116
  Transmission Date: 20180509
  Serious: Yes (Disabling, Other)
  Sender: FDA-Public Use
  Company Number: GB-TEVA-2018-GB-844588

PATIENT
  Age: 78 Year
  Sex: Male
  Weight: 46 kg

DRUGS (9)
  1. PARACETAMOL [Concomitant]
     Active Substance: ACETAMINOPHEN
     Indication: PAIN
     Dosage: TAKE 2 UP TO 4 TIMES A DAY AS REQUIRED
     Dates: start: 20171010, end: 20171016
  2. MORPHINE SULFATE. [Concomitant]
     Active Substance: MORPHINE SULFATE
     Dosage: 1.25MLS - 2.5MLS FOUR HOURLY, MAX FOUR TIMES DAILY
     Dates: start: 20171009, end: 20171023
  3. FENTANYL. [Concomitant]
     Active Substance: FENTANYL
     Dosage: APPLY AS PER DISCHARGE LETTER
     Dates: start: 20170619
  4. CLONAZEPAM. [Suspect]
     Active Substance: CLONAZEPAM
     Route: 065
     Dates: start: 20171128
  5. SINEMET [Concomitant]
     Active Substance: CARBIDOPA\LEVODOPA
     Dates: start: 20170606
  6. SINEMET [Concomitant]
     Active Substance: CARBIDOPA\LEVODOPA
     Dosage: AT NIGHT AROUND 10PM
     Dates: start: 20170919
  7. CASSIA [Concomitant]
     Dosage: ONE OR TWO TO BE TAKEN AT NIGHT IF NEEDED
     Dates: start: 20170606
  8. ORAMORPH [Concomitant]
     Active Substance: MORPHINE SULFATE
     Dosage: 2.5MGS/1.25MLS 4 HOURLY IF REQUIRED
     Dates: start: 20170731
  9. TINZAPARIN [Concomitant]
     Active Substance: TINZAPARIN
     Dosage: AS DIRECTED
     Route: 058
     Dates: start: 20171009, end: 20171028

REACTIONS (6)
  - Urinary incontinence [Unknown]
  - Fall [Recovered/Resolved]
  - Movement disorder [Unknown]
  - Anal incontinence [Unknown]
  - Malaise [Recovered/Resolved]
  - Decreased appetite [Recovered/Resolved]

NARRATIVE: CASE EVENT DATE: 20171129
